FAERS Safety Report 16851326 (Version 2)
Quarter: 2020Q2

REPORT INFORMATION
  Report Type: Spontaneous
  Country: DE (occurrence: DE)
  Receive Date: 20190925
  Receipt Date: 20200512
  Transmission Date: 20200713
  Serious: Yes (Death, Other)
  Sender: FDA-Public Use
  Company Number: DE-BAYER-2019-171913

PATIENT
  Age: 75 Year
  Sex: Male
  Weight: 95 kg

DRUGS (12)
  1. CIPROFLOXACIN. [Suspect]
     Active Substance: CIPROFLOXACIN
     Indication: LABORATORY TEST ABNORMAL
     Dosage: 500 MG, BID
     Dates: start: 20190708, end: 20190709
  2. METFORMIN [Concomitant]
     Active Substance: METFORMIN HYDROCHLORIDE
     Indication: TYPE 2 DIABETES MELLITUS
     Dosage: 425 MG, BID, HALF OF A 850 MG TABLET TWICE PER DAY
  3. NOVALGIN (METAMIZOLE SODIUM) [Concomitant]
     Active Substance: METAMIZOLE SODIUM
  4. HUMALOG [Concomitant]
     Active Substance: INSULIN LISPRO
     Indication: TYPE 2 DIABETES MELLITUS
     Dosage: ACCORDING TO BLOOD GLUCOSE LEVEL/ KE
  5. BISOPROLOL [Concomitant]
     Active Substance: BISOPROLOL
     Indication: HYPERTENSION
     Dosage: 2.5 MG, BID, HALF OF A 5 MG TABLET TWICE PER DAY
  6. PARACETAMOL [Concomitant]
     Active Substance: ACETAMINOPHEN
     Route: 042
  7. LEVEMIR [Concomitant]
     Active Substance: INSULIN DETEMIR
     Indication: TYPE 2 DIABETES MELLITUS
  8. FUROSEMID [FUROSEMIDE] [Concomitant]
     Active Substance: FUROSEMIDE
     Indication: HYPERTENSION
     Dosage: 60 MG, QD, ONE TABLET IN THE MORNING AND A HALF OF A 40 MG TABLET AT LUNCHTIME
  9. RAMIPRIL. [Concomitant]
     Active Substance: RAMIPRIL
     Indication: HYPERTENSION
     Dosage: 15 MG, 10 MG IN THE MORNING AND 5 MG IN THE EVENING
  10. ACETYLSALICYLIC ACID [Concomitant]
     Active Substance: ASPIRIN
     Indication: HYPERTENSION
     Dosage: 100 MG, QD
  11. SPIRONOLACTON [Concomitant]
     Active Substance: SPIRONOLACTONE
     Indication: HYPERTENSION
     Dosage: 50 MG, OM
  12. INDAPAMID [Concomitant]
     Active Substance: INDAPAMIDE
     Indication: HYPERTENSION
     Dosage: 1.5 MG, OM

REACTIONS (6)
  - Cardiac arrest [Fatal]
  - Livedo reticularis [Unknown]
  - Shock [Unknown]
  - Ventricular fibrillation [Unknown]
  - Loss of consciousness [Unknown]
  - Pharyngeal swelling [Unknown]

NARRATIVE: CASE EVENT DATE: 20190709
